FAERS Safety Report 8563573-3 (Version None)
Quarter: 2012Q3

REPORT INFORMATION
  Report Type: 
  Country: None (occurrence: None)
  Receive Date: 20120803
  Receipt Date: 20120726
  Transmission Date: 20120928
  Serious: Yes (Hospitalization)
  Sender: FDA-Public Use
  Company Number: US-AMGEN-USASP2012046937

PATIENT

DRUGS (1)
  1. ARANESP [Suspect]
     Indication: RENAL FAILURE CHRONIC
     Dosage: 60 MUG, UNK

REACTIONS (3)
  - PNEUMONIA [None]
  - EXPIRED DRUG ADMINISTERED [None]
  - HAEMOGLOBIN ABNORMAL [None]
